FAERS Safety Report 15800735 (Version 1)
Quarter: 2019Q1

REPORT INFORMATION
  Report Type: Spontaneous
  Country: IN (occurrence: IN)
  Receive Date: 20190109
  Receipt Date: 20190109
  Transmission Date: 20190417
  Serious: Yes (Other)
  Sender: FDA-Public Use
  Company Number: IN-LUPIN PHARMACEUTICALS INC.-2018-09243

PATIENT
  Age: 17 Year
  Sex: Male

DRUGS (2)
  1. TRAMADOL TABLET 300 MG [Suspect]
     Active Substance: TRAMADOL
     Indication: DRUG WITHDRAWAL SYNDROME
     Dosage: UNK (DIVIDED DOSES)
     Route: 065
  2. TRAMADOL TABLET 300 MG [Suspect]
     Active Substance: TRAMADOL
     Indication: TOBACCO WITHDRAWAL SYMPTOMS
     Dosage: UNK (UP TO 300 MG)
     Route: 065

REACTIONS (1)
  - Pica [Recovered/Resolved]
